FAERS Safety Report 15634419 (Version 1)
Quarter: 2018Q4

REPORT INFORMATION
  Report Type: Spontaneous
  Country: US (occurrence: US)
  Receive Date: 20181119
  Receipt Date: 20181119
  Transmission Date: 20190205
  Serious: Yes (Death)
  Sender: FDA-Public Use
  Company Number: None

PATIENT
  Age: 35 Month
  Sex: Female

DRUGS (5)
  1. CEPHALEXIN. [Concomitant]
     Active Substance: CEPHALEXIN
  2. REVATIO [Suspect]
     Active Substance: SILDENAFIL CITRATE
     Indication: PULMONARY ARTERIAL HYPERTENSION
     Dosage: ?          OTHER FREQUENCY:Q8H;OTHER ROUTE:VIA J TUBE (FEEDING TUBE)?
     Dates: start: 20160818
  3. SILDENAFIL. [Concomitant]
     Active Substance: SILDENAFIL
  4. COENZYME Q10 [Concomitant]
     Active Substance: UBIDECARENONE
  5. AMOXICILLIN. [Concomitant]
     Active Substance: AMOXICILLIN

REACTIONS (1)
  - Death [None]

NARRATIVE: CASE EVENT DATE: 20181109
